FAERS Safety Report 9086717 (Version 1)
Quarter: 2013Q1

REPORT INFORMATION
  Report Type: Spontaneous
  Country: US (occurrence: US)
  Receive Date: 20130131
  Receipt Date: 20130131
  Transmission Date: 20140127
  Serious: No
  Sender: FDA-Public Use
  Company Number: US-ROCHE-778936

PATIENT
  Sex: Female
  Weight: 85.81 kg

DRUGS (7)
  1. HERCEPTIN [Suspect]
     Indication: BREAST CANCER METASTATIC
     Route: 042
  2. XELODA [Suspect]
     Indication: BREAST CANCER METASTATIC
     Route: 048
     Dates: start: 200908, end: 201008
  3. ADO-TRASTUZUMAB EMTANSINE [Suspect]
     Indication: BREAST CANCER METASTATIC
     Dosage: TOTAL OF 4 DOSES ADMINISTERED
     Route: 065
     Dates: start: 20121016, end: 20121218
  4. TAXOTERE [Concomitant]
     Indication: BREAST CANCER METASTATIC
     Route: 042
  5. CARBOPLATIN [Concomitant]
     Indication: BREAST CANCER METASTATIC
     Route: 042
  6. TYKERB [Concomitant]
     Indication: BREAST CANCER METASTATIC
     Dosage: DOSE AND FREQUENCY NOT REPORTED
     Route: 048
     Dates: start: 200908, end: 201008
  7. ARIMIDEX [Concomitant]
     Indication: BREAST CANCER METASTATIC
     Route: 065

REACTIONS (2)
  - Alopecia [Unknown]
  - Disease progression [Unknown]
